FAERS Safety Report 5714821-6 (Version None)
Quarter: 2008Q2

REPORT INFORMATION
  Report Type: 
  Country: None (occurrence: None)
  Receive Date: 20080423
  Receipt Date: 20080304
  Transmission Date: 20081010
  Serious: Yes (Hospitalization, Other)
  Sender: FDA-Public Use
  Company Number: BE-ABBOTT-07P-013-0429647-00

PATIENT
  Sex: Female

DRUGS (3)
  1. KALETRA [Suspect]
     Indication: HIV INFECTION
     Dates: start: 20070522
  2. ABACAVIR SULFATE/LAMIVUDINE [Concomitant]
     Indication: HIV INFECTION
     Dosage: 600/300
     Dates: start: 20070501
  3. FERROUS GLUCONATE [Concomitant]
     Indication: ANAEMIA

REACTIONS (10)
  - ANOREXIA [None]
  - CHEST PAIN [None]
  - FATIGUE [None]
  - FURUNCLE [None]
  - GAMMOPATHY [None]
  - HYPERGAMMAGLOBULINAEMIA BENIGN MONOCLONAL [None]
  - LOBAR PNEUMONIA [None]
  - PNEUMONIA [None]
  - SEPSIS [None]
  - WEIGHT DECREASED [None]
